FAERS Safety Report 4720521-1 (Version None)
Quarter: 2005Q3

REPORT INFORMATION
  Report Type: 
  Country: None (occurrence: None)
  Receive Date: 20050721
  Receipt Date: 20050629
  Transmission Date: 20060218
  Serious: No
  Sender: FDA-Public Use
  Company Number: US-BRISTOL-MYERS SQUIBB COMPANY-13019930

PATIENT
  Age: 57 Year
  Sex: Female
  Weight: 102 kg

DRUGS (2)
  1. GLUCOVANCE [Suspect]
     Indication: DIABETES MELLITUS
  2. TENERETIC [Concomitant]

REACTIONS (2)
  - DYSPNOEA [None]
  - FEELING ABNORMAL [None]
